FAERS Safety Report 15456920 (Version 1)
Quarter: 2018Q4

REPORT INFORMATION
  Report Type: Spontaneous
  Country: DE (occurrence: DE)
  Receive Date: 20181002
  Receipt Date: 20181002
  Transmission Date: 20190204
  Serious: Yes (Other)
  Sender: FDA-Public Use
  Company Number: DE-MYLANLABS-2018M1071052

PATIENT
  Age: 72 Year
  Sex: Male

DRUGS (1)
  1. MUSE [Suspect]
     Active Substance: ALPROSTADIL
     Indication: PRODUCT USED FOR UNKNOWN INDICATION
     Dosage: 1000 ?G, QD (ONE DOSE ON TWO CONSECUTIVE DAYS)

REACTIONS (4)
  - Heart rate increased [Unknown]
  - Arrhythmia [Unknown]
  - Palpitations [Unknown]
  - Overdose [Unknown]
